FAERS Safety Report 20156412 (Version 1)
Quarter: 2021Q4

REPORT INFORMATION
  Report Type: Spontaneous
  Country: US (occurrence: None)
  Receive Date: 20211207
  Receipt Date: 20211207
  Transmission Date: 20220303
  Serious: Yes (Hospitalization)
  Sender: FDA-Public Use
  Company Number: None

PATIENT
  Age: 86 Year
  Sex: Female
  Weight: 46.5 kg

DRUGS (1)
  1. PEMBROLIZUMAB [Suspect]
     Active Substance: PEMBROLIZUMAB
     Dates: end: 20211129

REACTIONS (7)
  - Fall [None]
  - Urinary incontinence [None]
  - Facial paralysis [None]
  - Muscular weakness [None]
  - Confusional state [None]
  - Dizziness postural [None]
  - Intracranial aneurysm [None]

NARRATIVE: CASE EVENT DATE: 20211204
